FAERS Safety Report 6558805-7 (Version None)
Quarter: 2010Q1

REPORT INFORMATION
  Report Type: 
  Country: None (occurrence: None)
  Receive Date: 20100129
  Receipt Date: 20100118
  Transmission Date: 20100710
  Serious: Yes (Other)
  Sender: FDA-Public Use
  Company Number: PHHY2010CA02693

PATIENT
  Sex: Male

DRUGS (2)
  1. DIOVAN [Suspect]
     Dosage: 80 MG, UNK
     Route: 048
     Dates: end: 20070901
  2. DIOVAN [Suspect]
     Dosage: 160 MG, UNK
     Route: 048

REACTIONS (1)
  - CORONARY ARTERY BYPASS [None]
